FAERS Safety Report 24294557 (Version 1)
Quarter: 2024Q3

REPORT INFORMATION
  Report Type: Spontaneous
  Country: JP (occurrence: JP)
  Receive Date: 20240906
  Receipt Date: 20240906
  Transmission Date: 20241017
  Serious: Yes (Other)
  Sender: KYOWA
  Company Number: JP-KYOWAKIRIN-2024KK020571

PATIENT

DRUGS (1)
  1. POTELIGEO [Suspect]
     Active Substance: MOGAMULIZUMAB-KPKC
     Indication: Cutaneous T-cell lymphoma
     Dosage: UNK POTELIGEO WAS ADMINISTERED EVERY WEEK FOR 5 DOSES OF INTRAVENOUS INFUSION
     Route: 041
     Dates: start: 202408

REACTIONS (1)
  - Cytopenia [Unknown]
